FAERS Safety Report 17938284 (Version 2)
Quarter: 2020Q3

REPORT INFORMATION
  Report Type: Report from Study
  Country: US (occurrence: US)
  Receive Date: 20200624
  Receipt Date: 20200820
  Transmission Date: 20201103
  Serious: Yes (Hospitalization, Other)
  Sender: FDA-Public Use
  Company Number: US-BIOGEN-2020BI00888268

PATIENT
  Sex: Male

DRUGS (2)
  1. TYSABRI [Suspect]
     Active Substance: NATALIZUMAB
     Dosage: STARTER DOSE
     Route: 042
  2. TYSABRI [Suspect]
     Active Substance: NATALIZUMAB
     Indication: MULTIPLE SCLEROSIS
     Route: 065
     Dates: start: 20191212, end: 20191212

REACTIONS (5)
  - Angina pectoris [Unknown]
  - Dizziness [Unknown]
  - Peripheral swelling [Unknown]
  - Coronary artery occlusion [Unknown]
  - Tremor [Unknown]

NARRATIVE: CASE EVENT DATE: 2020
